FAERS Safety Report 18274681 (Version 1)
Quarter: 2020Q3

REPORT INFORMATION
  Report Type: Spontaneous
  Country: PR (occurrence: PR)
  Receive Date: 20200916
  Receipt Date: 20200916
  Transmission Date: 20201103
  Serious: No
  Sender: FDA-Public Use
  Company Number: PR-ABBVIE-20K-131-3485819-00

PATIENT
  Age: 18 Year
  Sex: Male

DRUGS (1)
  1. RINVOQ [Suspect]
     Active Substance: UPADACITINIB
     Indication: JUVENILE IDIOPATHIC ARTHRITIS
     Route: 048

REACTIONS (1)
  - Off label use [Unknown]
